FAERS Safety Report 24748488 (Version 1)
Quarter: 2024Q4

REPORT INFORMATION
  Report Type: Spontaneous
  Country: US (occurrence: None)
  Receive Date: 20241217
  Receipt Date: 20241217
  Transmission Date: 20250114
  Serious: Yes (Death, Life-Threatening, Hospitalization)
  Sender: Public
  Company Number: None

PATIENT
  Age: 63 Year
  Sex: Female
  Weight: 72 kg

DRUGS (1)
  1. TIRZEPATIDE [Suspect]
     Active Substance: TIRZEPATIDE

REACTIONS (4)
  - Gastrointestinal haemorrhage [None]
  - Haemoperitoneum [None]
  - Multiple organ dysfunction syndrome [None]
  - Shock haemorrhagic [None]

NARRATIVE: CASE EVENT DATE: 20241121
